FAERS Safety Report 18450760 (Version 4)
Quarter: 2021Q1

REPORT INFORMATION
  Report Type: Spontaneous
  Country: US (occurrence: US)
  Receive Date: 20201102
  Receipt Date: 20210303
  Transmission Date: 20210419
  Serious: Yes (Hospitalization)
  Sender: FDA-Public Use
  Company Number: US-ULTRAGENYX PHARMACEUTICAL INC.-US-UGNX-20-00206

PATIENT
  Age: 3 Month
  Sex: Male
  Weight: 4.5 kg

DRUGS (3)
  1. DOJOLVI [Suspect]
     Active Substance: TRIHEPTANOIN
     Indication: LONG-CHAIN ACYL-COENZYME A DEHYDROGENASE DEFICIENCY
     Dates: start: 20200905
  2. DOJOLVI [Suspect]
     Active Substance: TRIHEPTANOIN
     Indication: TRIFUNCTIONAL PROTEIN DEFICIENCY
     Dates: start: 20201013
  3. DOJOLVI [Suspect]
     Active Substance: TRIHEPTANOIN

REACTIONS (6)
  - Illness [Recovered/Resolved]
  - Dehydration [Recovered/Resolved]
  - Electrolyte imbalance [Recovered/Resolved]
  - Infection [Recovered/Resolved]
  - Respiratory symptom [Recovered/Resolved]
  - Decreased activity [Recovered/Resolved]

NARRATIVE: CASE EVENT DATE: 20201014
